FAERS Safety Report 6767844-2 (Version None)
Quarter: 2010Q2

REPORT INFORMATION
  Report Type: 
  Country: None (occurrence: None)
  Receive Date: 20100614
  Receipt Date: 20100604
  Transmission Date: 20101027
  Serious: Yes (Hospitalization)
  Sender: FDA-Public Use
  Company Number: PHHO2010TR08453

PATIENT
  Sex: Male
  Weight: 66 kg

DRUGS (2)
  1. CGP 57148B T35717+ [Suspect]
     Indication: GASTROINTESTINAL STROMAL TUMOUR
     Dosage: 400 MG DAILY
     Route: 048
  2. MIDAZOLAM [Concomitant]

REACTIONS (1)
  - MENISCUS OPERATION [None]
